FAERS Safety Report 16231077 (Version 2)
Quarter: 2019Q3

REPORT INFORMATION
  Report Type: Spontaneous
  Country: CA (occurrence: CA)
  Receive Date: 20190423
  Receipt Date: 20190716
  Transmission Date: 20191004
  Serious: Yes (Hospitalization)
  Sender: FDA-Public Use
  Company Number: CA-SA-2019SA103009

PATIENT
  Age: 53 Year
  Sex: Female
  Weight: 54 kg

DRUGS (7)
  1. LOVENOX [Suspect]
     Active Substance: ENOXAPARIN SODIUM
     Indication: THROMBOSIS PROPHYLAXIS
     Dosage: 40 MG, QD
     Route: 058
     Dates: start: 20171211, end: 20171219
  2. PROGESTERONE. [Concomitant]
     Active Substance: PROGESTERONE
     Dosage: 100 MG, UNK
  3. SENNA [SENNA SPP.] [Concomitant]
     Dosage: 17.2 MG, BID
     Route: 048
  4. HYDROMORPHONE [Concomitant]
     Active Substance: HYDROMORPHONE
     Dosage: UNK UNK, UNK
  5. DIMENHYDRINATE. [Concomitant]
     Active Substance: DIMENHYDRINATE
     Dosage: 25-50 MG AS NECESSARY
     Route: 042
  6. ESTROGEL [Concomitant]
     Active Substance: ESTRADIOL
     Dosage: UNK UNK, UNK
  7. IBUPROFEN. [Concomitant]
     Active Substance: IBUPROFEN
     Dosage: 200 MG, Q6H AS NECESSARY

REACTIONS (2)
  - Necrotising fasciitis [Recovering/Resolving]
  - Cellulitis [Recovering/Resolving]

NARRATIVE: CASE EVENT DATE: 20171220
